FAERS Safety Report 11916793 (Version 1)
Quarter: 2016Q1

REPORT INFORMATION
  Report Type: Report from Study
  Country: CN (occurrence: CN)
  Receive Date: 20160114
  Receipt Date: 20160114
  Transmission Date: 20160526
  Serious: Yes (Death)
  Sender: FDA-Public Use
  Company Number: CN-ASTELLAS-2015US033641

PATIENT
  Age: 67 Year
  Sex: Male

DRUGS (9)
  1. MEICELIN [Concomitant]
     Indication: PRODUCT USED FOR UNKNOWN INDICATION
     Dosage: 1 G, TWICE DAILY
     Route: 042
     Dates: start: 20140107, end: 20140108
  2. SHUXING [Concomitant]
     Indication: PRODUCT USED FOR UNKNOWN INDICATION
     Dosage: 3 MG DAILY DOSE, TWICE DAILY
     Route: 042
     Dates: start: 20140106, end: 20140111
  3. LANSOPRAZOLE. [Concomitant]
     Active Substance: LANSOPRAZOLE
     Indication: PRODUCT USED FOR UNKNOWN INDICATION
     Dosage: 30 MG DAILY DOSE, TWICE DAILY
     Route: 042
     Dates: start: 20140106, end: 20140110
  4. TRAMCONTIN [Concomitant]
     Active Substance: TRAMADOL
     Indication: PRODUCT USED FOR UNKNOWN INDICATION
     Dosage: 200 MG DAILY DOSE, ONCE DAILY
     Route: 048
     Dates: start: 20140106, end: 20140108
  5. HEXINXIEYE [Concomitant]
     Indication: PRODUCT USED FOR UNKNOWN INDICATION
     Route: 048
     Dates: start: 20140106, end: 20140111
  6. EPIAO [Concomitant]
     Indication: PRODUCT USED FOR UNKNOWN INDICATION
     Route: 058
     Dates: start: 20140107, end: 20140108
  7. MICAFUNGIN [Suspect]
     Active Substance: MICAFUNGIN
     Indication: FUNGAL INFECTION
     Route: 042
     Dates: start: 20140108, end: 20140111
  8. RUIBAI [Concomitant]
     Indication: PLASMA CELL MYELOMA
     Route: 058
     Dates: start: 20140106, end: 20140111
  9. TIENAM [Concomitant]
     Active Substance: CILASTATIN SODIUM\IMIPENEM
     Indication: CHRONIC KIDNEY DISEASE
     Dosage: 0.5 G, UNKNOWN FREQ.
     Route: 065

REACTIONS (2)
  - Dyspnoea [Recovering/Resolving]
  - Lung infection [Fatal]

NARRATIVE: CASE EVENT DATE: 20140109
